FAERS Safety Report 9789715 (Version 1)
Quarter: 2013Q4

REPORT INFORMATION
  Report Type: Spontaneous
  Country: GB (occurrence: None)
  Receive Date: 20131227
  Receipt Date: 20131227
  Transmission Date: 20140711
  Serious: Yes (Other)
  Sender: FDA-Public Use
  Company Number: AUR-APL-2013-10640

PATIENT
  Age: 30 Month
  Sex: Female
  Weight: 17 kg

DRUGS (3)
  1. MONTELUKAST [Suspect]
     Indication: ASTHMA
     Dosage: 1 IN 1 D
     Route: 048
     Dates: start: 201308, end: 201310
  2. CLENIL MODULITE (BECLOMETASONE DIPROPIONATE) [Concomitant]
  3. VENTOLIN (SALBUTAMOL) [Concomitant]

REACTIONS (7)
  - Aggression [None]
  - Sleep disorder [None]
  - Abnormal behaviour [None]
  - Nightmare [None]
  - Hallucination [None]
  - Abdominal pain [None]
  - Flatulence [None]
